FAERS Safety Report 14689571 (Version 2)
Quarter: 2019Q4

REPORT INFORMATION
  Report Type: Spontaneous
  Country: GB (occurrence: GB)
  Receive Date: 20180328
  Receipt Date: 20191101
  Transmission Date: 20200122
  Serious: Yes (Other)
  Sender: FDA-Public Use
  Company Number: GB-MYLANLABS-2018M1018010

PATIENT
  Age: 1 Year
  Sex: Female
  Weight: 15 kg

DRUGS (3)
  1. CLOMIPRAMINE [Suspect]
     Active Substance: CLOMIPRAMINE
     Indication: BIPOLAR DISORDER
     Dosage: 150 MG, UNK
     Route: 064
  2. CLOMIPRAMINE [Suspect]
     Active Substance: CLOMIPRAMINE
     Dosage: 150 MG, QD
     Route: 063
     Dates: end: 20090605
  3. CLOMIPRAMINE [Suspect]
     Active Substance: CLOMIPRAMINE
     Dosage: 150 MILLIGRAM, QD
     Route: 064
     Dates: start: 20081001

REACTIONS (5)
  - Exposure via breast milk [Recovered/Resolved]
  - Developmental delay [Not Recovered/Not Resolved]
  - Learning disability [Not Recovered/Not Resolved]
  - Foetal exposure during pregnancy [Recovered/Resolved]
  - Failure to thrive [Not Recovered/Not Resolved]

NARRATIVE: CASE EVENT DATE: 20100605
